FAERS Safety Report 7929091-8 (Version None)
Quarter: 2011Q4

REPORT INFORMATION
  Report Type: 
  Country: None (occurrence: None)
  Receive Date: 20111119
  Receipt Date: 20111114
  Transmission Date: 20120403
  Serious: Yes (Life-Threatening)
  Sender: FDA-Public Use
  Company Number: FR-ASTRAZENECA-2011SE68983

PATIENT
  Age: 45 Year
  Sex: Female

DRUGS (3)
  1. AUGMENTIN [Suspect]
     Route: 048
     Dates: start: 20111017, end: 20111017
  2. RHINOCORT [Suspect]
     Route: 045
     Dates: start: 20111017, end: 20111017
  3. AUGMENTIN [Suspect]
     Indication: SINUSITIS
     Route: 048
     Dates: start: 20110801

REACTIONS (1)
  - ANAPHYLACTIC SHOCK [None]
